FAERS Safety Report 7935009-4 (Version None)
Quarter: 2011Q4

REPORT INFORMATION
  Report Type: 
  Country: None (occurrence: None)
  Receive Date: 20111122
  Receipt Date: 20111118
  Transmission Date: 20120403
  Serious: Yes (Other)
  Sender: FDA-Public Use
  Company Number: DE-ABBOTT-11P-062-0699647-00

PATIENT
  Sex: Female

DRUGS (4)
  1. ANALGESIC [Concomitant]
     Indication: PRODUCT USED FOR UNKNOWN INDICATION
  2. HUMIRA [Suspect]
     Indication: CROHN'S DISEASE
     Dates: start: 20100721, end: 20110725
  3. HUMIRA [Suspect]
  4. EYE OINTMENT [Concomitant]
     Indication: PRODUCT USED FOR UNKNOWN INDICATION

REACTIONS (6)
  - MALAISE [None]
  - NASOPHARYNGITIS [None]
  - FATIGUE [None]
  - TUBERCULOSIS [None]
  - PYREXIA [None]
  - CHILLS [None]
